FAERS Safety Report 5167507-3 (Version None)
Quarter: 2006Q4

REPORT INFORMATION
  Report Type: 
  Country: None (occurrence: None)
  Receive Date: 20060830
  Receipt Date: 20060405
  Transmission Date: 20070319
  Serious: No
  Sender: FDA-Public Use
  Company Number: 223163

PATIENT
  Age: 13 Year
  Sex: Male

DRUGS (6)
  1. XOLAIR [Suspect]
     Indication: ASTHMA
     Dosage: 375 MG, Q2W
     Dates: start: 20041201
  2. XOLAIR [Suspect]
     Indication: ASTHMA
     Dosage: 375 MG, Q2W
     Dates: start: 20060220
  3. XOLAIR [Suspect]
     Dates: start: 20051201
  4. XOLAIR [Suspect]
     Dates: start: 20060105, end: 20060119
  5. XOLAIR [Suspect]
     Dates: start: 20060202
  6. XOLAIR [Suspect]
     Dates: start: 20060302

REACTIONS (1)
  - ABDOMINAL PAIN [None]
